FAERS Safety Report 9459114 (Version 1)
Quarter: 2013Q3

REPORT INFORMATION
  Report Type: Spontaneous
  Country: US (occurrence: US)
  Receive Date: 20130814
  Receipt Date: 20130814
  Transmission Date: 20140515
  Serious: Yes (Hospitalization, Other)
  Sender: FDA-Public Use
  Company Number: US-BAXTER-2013BAX031053

PATIENT
  Age: 66 Year
  Sex: Male

DRUGS (2)
  1. DIANEAL LOW CALCIUM [Suspect]
     Indication: PERITONEAL DIALYSIS
     Route: 033
     Dates: start: 201107
  2. DIANEAL LOW CALCIUM [Suspect]
     Indication: PERITONEAL DIALYSIS
     Route: 033
     Dates: start: 201107

REACTIONS (5)
  - Cardiac arrest [Recovered/Resolved]
  - Blood magnesium abnormal [Recovering/Resolving]
  - Blood potassium abnormal [Recovering/Resolving]
  - Coronary artery occlusion [Recovering/Resolving]
  - Staphylococcal sepsis [Recovering/Resolving]
